FAERS Safety Report 6903667-9 (Version None)
Quarter: 2010Q3

REPORT INFORMATION
  Report Type: 
  Country: None (occurrence: None)
  Receive Date: 20100803
  Receipt Date: 20081105
  Transmission Date: 20110219
  Serious: No
  Sender: FDA-Public Use
  Company Number: US-PFIZER INC-2008093939

PATIENT
  Sex: Female
  Weight: 62.727 kg

DRUGS (4)
  1. LYRICA [Suspect]
     Indication: TORTICOLLIS
     Dates: start: 20080801
  2. ATIVAN [Concomitant]
  3. VITAMIN TAB [Concomitant]
  4. CALTRATE [Concomitant]

REACTIONS (4)
  - DIZZINESS [None]
  - PAIN [None]
  - RENAL DISORDER [None]
  - VISION BLURRED [None]
